FAERS Safety Report 7577911-1 (Version None)
Quarter: 2011Q2

REPORT INFORMATION
  Report Type: 
  Country: None (occurrence: None)
  Receive Date: 20110621
  Receipt Date: 20110408
  Transmission Date: 20111010
  Serious: Yes (Death, Hospitalization, Other)
  Sender: FDA-Public Use
  Company Number: 2010000302

PATIENT
  Age: 73 Year
  Sex: Male
  Weight: 66 kg

DRUGS (11)
  1. SORAFENIB (SORAFENIB) TABLET [Suspect]
     Indication: HEPATIC NEOPLASM MALIGNANT
     Dosage: 800 MG, UID/QD, ORAL
     Route: 048
     Dates: start: 20100112, end: 20100115
  2. LASIX [Concomitant]
  3. ALDACTONE (POTASSIUM CANFRENOATE) [Concomitant]
  4. DOCITON (PROPRANOLOL HYDROCHLORIDE) [Concomitant]
  5. SIMVASTATIN [Concomitant]
  6. LEVOTHYROXINE SODIUM [Concomitant]
  7. OLMESARTAN (OLMESARTAN) [Concomitant]
  8. ERLOTINIB HYDROCHLORIDE [Suspect]
     Indication: HEPATIC NEOPLASM MALIGNANT
     Dosage: 150 MG, UID/QD, ORAL
     Route: 048
     Dates: start: 20100112, end: 20100115
  9. ALLOPURINOL [Concomitant]
  10. JANUVIA [Concomitant]
  11. METFORMIN HCL [Concomitant]

REACTIONS (7)
  - GENERAL PHYSICAL HEALTH DETERIORATION [None]
  - RENAL FAILURE [None]
  - SYNCOPE [None]
  - AORTIC ANEURYSM [None]
  - OESOPHAGEAL VARICES HAEMORRHAGE [None]
  - PERITONITIS BACTERIAL [None]
  - HEPATIC ENCEPHALOPATHY [None]
